FAERS Safety Report 7133447-3 (Version None)
Quarter: 2010Q4

REPORT INFORMATION
  Report Type: 
  Country: None (occurrence: None)
  Receive Date: 20101202
  Receipt Date: 20101122
  Transmission Date: 20110411
  Serious: Yes (Other)
  Sender: FDA-Public Use
  Company Number: US-AMGEN-USASP2010006591

PATIENT

DRUGS (9)
  1. PROCRIT [Suspect]
     Indication: RENAL FAILURE CHRONIC
     Dosage: 2500 UNIT, 2 TIMES/WK
     Route: 058
  2. DARBEPOETIN ALFA [Suspect]
     Indication: RENAL FAILURE CHRONIC
  3. CLONAZEPAM [Concomitant]
     Dosage: 1 MG, PRN
  4. MYCOPHENOLATE MOFETIL [Concomitant]
     Dosage: 750 UNK, BID
  5. TACROLIMUS [Concomitant]
     Dosage: 4 MG, BID
  6. PREDNISONE [Concomitant]
     Dosage: 5 MG, QD
  7. VITAMIN A [Concomitant]
     Dosage: 100 IU, QD
  8. ASPIRIN [Concomitant]
     Dosage: 81 MG, QOD
  9. CALCITRIOL [Concomitant]
     Dosage: 0.25 A?G, QD

REACTIONS (3)
  - HEADACHE [None]
  - NAUSEA [None]
  - PALATAL OEDEMA [None]
